FAERS Safety Report 23843791 (Version 1)
Quarter: 2024Q2

REPORT INFORMATION
  Report Type: Spontaneous
  Country: FR (occurrence: FR)
  Receive Date: 20240510
  Receipt Date: 20240510
  Transmission Date: 20240715
  Serious: Yes (Other)
  Sender: FDA-Public Use
  Company Number: FR-002147023-NVSC2024FR096537

PATIENT
  Age: 9 Year
  Sex: Male
  Weight: 44.6 kg

DRUGS (1)
  1. TRAMETINIB [Suspect]
     Active Substance: TRAMETINIB
     Indication: Glioma
     Dosage: 22 ML, QD, 1.1 MG/DAY (0.025MG/KG/DAY) I.E. 22 ML/DAY
     Route: 048

REACTIONS (4)
  - Glioma [Unknown]
  - Malignant neoplasm progression [Unknown]
  - Vomiting [Unknown]
  - Off label use [Unknown]
